FAERS Safety Report 4292862-6 (Version None)
Quarter: 2004Q1

REPORT INFORMATION
  Report Type: 
  Country: None (occurrence: None)
  Receive Date: 20040212
  Receipt Date: 20030716
  Transmission Date: 20041129
  Serious: No
  Sender: FDA-Public Use
  Company Number: US-GLAXOSMITHKLINE-A0416911A

PATIENT
  Age: 49 Year
  Sex: Male

DRUGS (2)
  1. PAXIL [Suspect]
     Route: 048
     Dates: start: 20010101
  2. LIPITOR [Concomitant]

REACTIONS (1)
  - MYOCLONUS [None]
